FAERS Safety Report 10264487 (Version 1)
Quarter: 2014Q2

REPORT INFORMATION
  Report Type: Spontaneous
  Country: None (occurrence: None)
  Receive Date: 20140625
  Receipt Date: 20140625
  Transmission Date: 20141212
  Serious: No
  Sender: FDA-Public Use
  Company Number: None

PATIENT
  Age: 70 Year
  Sex: Female
  Weight: 92.08 kg

DRUGS (1)
  1. ENBREL [Suspect]
     Dates: start: 20140103, end: 20140623

REACTIONS (2)
  - Malaise [None]
  - Urine odour abnormal [None]
